FAERS Safety Report 4821595-X (Version None)
Quarter: 2005Q4

REPORT INFORMATION
  Report Type: 
  Country: None (occurrence: None)
  Receive Date: 20051103
  Receipt Date: 20051103
  Transmission Date: 20060501
  Serious: No
  Sender: FDA-Public Use
  Company Number: None

PATIENT
  Age: 20 Year
  Sex: Female
  Weight: 133.5843 kg

DRUGS (1)
  1. DEPO-PROVERA [Suspect]
     Dosage: 150 MG/ML Q 10-13 WK IM
     Route: 030

REACTIONS (2)
  - DEVICE FAILURE [None]
  - PHARMACEUTICAL PRODUCT COMPLAINT [None]
